FAERS Safety Report 8769554 (Version 1)
Quarter: 2012Q4

REPORT INFORMATION
  Report Type: 
  Country: VE (occurrence: VE)
  Receive Date: 20120905
  Receipt Date: 20120905
  Transmission Date: 20130627
  Serious: Yes (Other)
  Sender: FDA-Public Use
  Company Number: PHHY2012VE075685

PATIENT
  Sex: Female

DRUGS (4)
  1. FEMARA [Suspect]
     Indication: BREAST CANCER
     Dosage: once a day
     Route: 048
     Dates: start: 20090519, end: 20090918
  2. FEMARA [Suspect]
     Dosage: once a day
     Route: 048
     Dates: start: 201207
  3. CALCIUM [Concomitant]
     Dosage: UNK
     Route: 048
     Dates: start: 1991
  4. GLUCOSAMINE [Concomitant]
     Indication: KNEE DEFORMITY
     Dosage: UNK UKN, UNK
     Route: 048
     Dates: start: 1991

REACTIONS (4)
  - Oropharyngeal pain [Not Recovered/Not Resolved]
  - Dyspnoea [None]
  - Throat irritation [None]
  - Dysphonia [None]
